FAERS Safety Report 5131083-1 (Version None)
Quarter: 2006Q3

REPORT INFORMATION
  Report Type: 
  Country: None (occurrence: None)
  Receive Date: 20060825
  Receipt Date: 20050923
  Transmission Date: 20061208
  Serious: Yes (Other)
  Sender: FDA-Public Use
  Company Number: 2005103619

PATIENT
  Sex: Male
  Weight: 79.3795 kg

DRUGS (6)
  1. VFEND [Suspect]
     Indication: CANDIDIASIS
     Dosage: 400 MG (200 MG,2 IN 1 D),ORAL
     Route: 048
     Dates: start: 20050708
  2. VFEND [Suspect]
     Indication: URINARY TRACT INFECTION
     Dosage: 400 MG (200 MG,2 IN 1 D),ORAL
     Route: 048
     Dates: start: 20050708
  3. FLUCONAZOLE [Suspect]
     Indication: CANDIDIASIS
     Dosage: 200 MG (200 MG,1 IN 1 D)
  4. FLUCONAZOLE [Suspect]
     Indication: URINARY TRACT INFECTION
     Dosage: 200 MG (200 MG,1 IN 1 D)
  5. GLYBURIDE [Suspect]
     Indication: DIABETES MELLITUS
     Dosage: ORAL
     Route: 048
  6. GLUCOPHAGE [Concomitant]

REACTIONS (3)
  - DRUG INEFFECTIVE [None]
  - DRUG INTERACTION [None]
  - HYPOGLYCAEMIA [None]
